FAERS Safety Report 5422672-5 (Version None)
Quarter: 2007Q3

REPORT INFORMATION
  Report Type: 
  Country: None (occurrence: None)
  Receive Date: 20070822
  Receipt Date: 20070810
  Transmission Date: 20080115
  Serious: Yes (Other)
  Sender: FDA-Public Use
  Company Number: US-PFIZER INC-2007048347

PATIENT
  Sex: Female
  Weight: 55.9 kg

DRUGS (2)
  1. CHANTIX [Suspect]
     Indication: EX-SMOKER
     Dates: start: 20070501, end: 20070601
  2. FLEXERIL [Concomitant]
     Indication: MUSCLE RELAXANT THERAPY

REACTIONS (5)
  - HAEMATEMESIS [None]
  - NAUSEA [None]
  - POOR PERIPHERAL CIRCULATION [None]
  - PULSE ABSENT [None]
  - THROMBOSIS [None]
